FAERS Safety Report 5815742-0 (Version None)
Quarter: 2008Q3

REPORT INFORMATION
  Report Type: 
  Country: None (occurrence: None)
  Receive Date: 20080721
  Receipt Date: 20080516
  Transmission Date: 20090109
  Serious: No
  Sender: FDA-Public Use
  Company Number: US-KINGPHARMUSA00001-K200800592

PATIENT

DRUGS (1)
  1. BICILLIN L-A [Suspect]
     Dosage: UNK, TWICE WEEKLY

REACTIONS (2)
  - INJECTION SITE HAEMATOMA [None]
  - INJECTION SITE SCAR [None]
